FAERS Safety Report 5664941-X (Version None)
Quarter: 2008Q1

REPORT INFORMATION
  Report Type: 
  Country: None (occurrence: None)
  Receive Date: 20080314
  Receipt Date: 20080305
  Transmission Date: 20080703
  Serious: Yes (Hospitalization, Other)
  Sender: FDA-Public Use
  Company Number: US-ELI_LILLY_AND_COMPANY-US200711006526

PATIENT
  Sex: Male
  Weight: 99.773 kg

DRUGS (8)
  1. CYMBALTA [Suspect]
     Indication: PAIN MANAGEMENT
     Dosage: 30 MG, DAILY (1/D)
     Dates: start: 20070801
  2. CYMBALTA [Suspect]
     Dosage: 60 MG, DAILY (1/D)
  3. CYMBALTA [Suspect]
     Dosage: 90 MG, DAILY (1/D)
     Dates: end: 20071001
  4. VICODIN [Concomitant]
     Dosage: 1 D/F, UNK
  5. VALIUM [Concomitant]
     Dosage: 1 D/F, UNK
  6. LISINOPRIL [Concomitant]
     Dosage: 10 MG, DAILY (1/D)
  7. OXYCODONE HCL [Concomitant]
  8. NEURONTIN [Concomitant]
     Dosage: 900 MG, EACH EVENING
     Dates: start: 20071101

REACTIONS (25)
  - ABDOMINAL PAIN [None]
  - ANOREXIA [None]
  - DIARRHOEA [None]
  - DIZZINESS [None]
  - DRY MOUTH [None]
  - FAECES DISCOLOURED [None]
  - FATIGUE [None]
  - HAEMORRHOIDS [None]
  - HEART RATE INCREASED [None]
  - HEPATIC STEATOSIS [None]
  - HIATUS HERNIA [None]
  - HYPERHIDROSIS [None]
  - JAUNDICE [None]
  - NAUSEA [None]
  - OCULAR ICTERUS [None]
  - RESTLESSNESS [None]
  - SEXUAL DYSFUNCTION [None]
  - SOMNOLENCE [None]
  - SYNCOPE VASOVAGAL [None]
  - TREMOR [None]
  - URINE COLOUR ABNORMAL [None]
  - URINE OUTPUT [None]
  - VISION BLURRED [None]
  - VOMITING [None]
  - WEIGHT DECREASED [None]
